FAERS Safety Report 6070844-1 (Version None)
Quarter: 2009Q1

REPORT INFORMATION
  Report Type: 
  Country: None (occurrence: None)
  Receive Date: 20090209
  Receipt Date: 20080917
  Transmission Date: 20090719
  Serious: No
  Sender: FDA-Public Use
  Company Number: A0747938A

PATIENT
  Sex: Male

DRUGS (2)
  1. PAROXETINE HCL [Suspect]
     Route: 048
     Dates: start: 20070101
  2. INHALER [Concomitant]

REACTIONS (3)
  - DRUG INEFFECTIVE [None]
  - LOSS OF EMPLOYMENT [None]
  - PERSONALITY CHANGE [None]
